FAERS Safety Report 9140853 (Version 2)
Quarter: 2013Q2

REPORT INFORMATION
  Report Type: Spontaneous
  Country: CA (occurrence: CA)
  Receive Date: 20130305
  Receipt Date: 20130513
  Transmission Date: 20140414
  Serious: Yes (Life-Threatening, Hospitalization, Other)
  Sender: FDA-Public Use
  Company Number: CA-NAPPMUNDI-CAN-2013-0003820

PATIENT
  Age: 49 Year
  Sex: Female

DRUGS (5)
  1. OXYCONTIN TABLETS [Suspect]
     Indication: INJURY
     Route: 065
  2. CODEINE [Suspect]
     Indication: PRODUCT USED FOR UNKNOWN INDICATION
     Route: 065
  3. METHADONE [Suspect]
     Indication: PRODUCT USED FOR UNKNOWN INDICATION
     Dosage: UNK
     Route: 065
     Dates: start: 2010
  4. COCAINE [Suspect]
     Indication: PRODUCT USED FOR UNKNOWN INDICATION
     Dosage: UNK
     Route: 055
  5. MARIJUANA [Suspect]
     Indication: PRODUCT USED FOR UNKNOWN INDICATION
     Dosage: UNK
     Route: 055

REACTIONS (12)
  - Drug dependence [Unknown]
  - Substance abuse [Unknown]
  - Overdose [Unknown]
  - Toxicity to various agents [Unknown]
  - Consciousness fluctuating [Unknown]
  - Judgement impaired [Unknown]
  - Impaired driving ability [Unknown]
  - Dyspnoea [Unknown]
  - Hypotension [Unknown]
  - Gait disturbance [Unknown]
  - Dysarthria [Unknown]
  - Confusional state [Unknown]
